FAERS Safety Report 6636496-4 (Version None)
Quarter: 2010Q1

REPORT INFORMATION
  Report Type: 
  Country: None (occurrence: None)
  Receive Date: 20100226
  Receipt Date: 20090612
  Transmission Date: 20100710
  Serious: Yes (Hospitalization)
  Sender: FDA-Public Use
  Company Number: WAES 0906USA02195

PATIENT
  Age: 40 Year

DRUGS (2)
  1. PRINIVIL [Suspect]
     Dosage: PO
     Route: 048
     Dates: end: 20031202
  2. ZESTRIL [Suspect]

REACTIONS (1)
  - ANGIOEDEMA [None]
